FAERS Safety Report 18643025 (Version 1)
Quarter: 2020Q4

REPORT INFORMATION
  Report Type: Spontaneous
  Country: US (occurrence: US)
  Receive Date: 20201220
  Receipt Date: 20201220
  Transmission Date: 20210114
  Serious: Yes (Life-Threatening, Hospitalization, Disabling, Other)
  Sender: FDA-Public Use
  Company Number: None

PATIENT
  Age: 37 Year
  Sex: Female
  Weight: 52.2 kg

DRUGS (3)
  1. MULTIVITAMIN [Concomitant]
     Active Substance: VITAMINS
  2. CIPRO [Suspect]
     Active Substance: CIPROFLOXACIN HYDROCHLORIDE
     Indication: URINARY TRACT INFECTION
     Dosage: ?          QUANTITY:1 TABLET(S);?
     Route: 048
     Dates: start: 20150810, end: 20150816
  3. SUPPLEMENTS [Concomitant]
     Active Substance: UNSPECIFIED INGREDIENT

REACTIONS (56)
  - Hypothyroidism [None]
  - Abdominal pain [None]
  - Suicidal ideation [None]
  - Joint noise [None]
  - Diarrhoea [None]
  - Abnormal DNA methylation [None]
  - Candida infection [None]
  - Swelling [None]
  - Progesterone decreased [None]
  - Influenza like illness [None]
  - Rash [None]
  - Scab [None]
  - Vitamin D decreased [None]
  - Feeling abnormal [None]
  - Fatigue [None]
  - Fungal infection [None]
  - Hyperaesthesia teeth [None]
  - Neuropathy peripheral [None]
  - Vision blurred [None]
  - Pain in extremity [None]
  - Muscle atrophy [None]
  - Halo vision [None]
  - Musculoskeletal stiffness [None]
  - Cyst [None]
  - Glucose urine present [None]
  - Gait disturbance [None]
  - Toothache [None]
  - Depression [None]
  - Paraesthesia [None]
  - Back pain [None]
  - Myalgia [None]
  - Urinary tract infection [None]
  - Anxiety [None]
  - Tinnitus [None]
  - Eructation [None]
  - Anger [None]
  - Blood testosterone decreased [None]
  - Blood copper increased [None]
  - Memory impairment [None]
  - Abdominal distension [None]
  - Crying [None]
  - Photosensitivity reaction [None]
  - Nasal dryness [None]
  - Urinary tract inflammation [None]
  - Gastrointestinal bacterial overgrowth [None]
  - Quality of life decreased [None]
  - Muscle twitching [None]
  - Nephrolithiasis [None]
  - Clostridium difficile infection [None]
  - Infection parasitic [None]
  - Mood swings [None]
  - Headache [None]
  - Hyperacusis [None]
  - Muscle rigidity [None]
  - Constipation [None]
  - Weight decreased [None]

NARRATIVE: CASE EVENT DATE: 20150810
